FAERS Safety Report 13076162 (Version 1)
Quarter: 2016Q4

REPORT INFORMATION
  Report Type: Spontaneous
  Country: US (occurrence: US)
  Receive Date: 20161230
  Receipt Date: 20161230
  Transmission Date: 20170207
  Serious: No
  Sender: FDA-Public Use
  Company Number: US-SUPERNUS PHARMACEUTICALS, INC.-2016SUP00086

PATIENT
  Age: 55 Year
  Sex: Female
  Weight: 88.44 kg

DRUGS (5)
  1. GABAPENTIN. [Concomitant]
     Active Substance: GABAPENTIN
     Indication: TRIGEMINAL NEURALGIA
     Dosage: UNK
  2. OXTELLAR XR [Suspect]
     Active Substance: OXCARBAZEPINE
     Indication: TRIGEMINAL NEURALGIA
     Dosage: 600 MG, 2X/DAY
     Route: 048
     Dates: start: 20160420, end: 20160424
  3. OXTELLAR XR [Suspect]
     Active Substance: OXCARBAZEPINE
     Dosage: 600 MG, 1X/DAY
     Dates: start: 20160424
  4. EVAMIST [Concomitant]
     Active Substance: ESTRADIOL
  5. PROMETRIUM [Concomitant]
     Active Substance: PROGESTERONE

REACTIONS (10)
  - Somnolence [Recovering/Resolving]
  - Thinking abnormal [Recovering/Resolving]
  - Overdose [Recovered/Resolved]
  - Dizziness [Recovering/Resolving]
  - Urinary incontinence [Recovered/Resolved]
  - Vision blurred [Recovering/Resolving]
  - Activities of daily living impaired [Recovering/Resolving]
  - Paraesthesia [Recovering/Resolving]
  - Aphasia [Recovering/Resolving]
  - Off label use [Not Recovered/Not Resolved]

NARRATIVE: CASE EVENT DATE: 201604
